FAERS Safety Report 5315695-8 (Version None)
Quarter: 2007Q2

REPORT INFORMATION
  Report Type: 
  Country: None (occurrence: None)
  Receive Date: 20070503
  Receipt Date: 20070427
  Transmission Date: 20071010
  Serious: Yes (Hospitalization)
  Sender: FDA-Public Use
  Company Number: JP-MERCK-0705USA00074

PATIENT
  Age: 55 Year
  Sex: Female

DRUGS (6)
  1. COZAAR [Suspect]
     Indication: HYPERTENSION
     Route: 048
     Dates: end: 20070313
  2. CYANOCOBALAMIN [Concomitant]
     Route: 065
  3. DEPAS [Concomitant]
     Route: 048
  4. ADETPHOS [Concomitant]
     Route: 065
  5. HICEE [Concomitant]
     Route: 048
  6. VITANEURON [Concomitant]
     Route: 065

REACTIONS (1)
  - LICHEN PLANUS [None]
